FAERS Safety Report 7169707-X (Version None)
Quarter: 2010Q4

REPORT INFORMATION
  Report Type: 
  Country: None (occurrence: None)
  Receive Date: 20101217
  Receipt Date: 20101209
  Transmission Date: 20110411
  Serious: Yes (Other)
  Sender: FDA-Public Use
  Company Number: US-PFIZER INC-2010168534

PATIENT
  Sex: Male
  Weight: 70.2 kg

DRUGS (4)
  1. EFFEXOR XR [Suspect]
     Indication: ANXIETY
     Dosage: 37.5 MG, 1X/DAY
     Route: 048
     Dates: start: 20100901
  2. EFFEXOR XR [Interacting]
     Indication: DEPRESSION
     Dosage: 75 MG, 1X/DAY
     Dates: start: 20100101
  3. EFFEXOR XR [Interacting]
     Dosage: 112 MG, 1X/DAY
     Dates: start: 20100101
  4. CAFFEINE [Interacting]
     Dosage: 200 MG, 1X/DAY

REACTIONS (6)
  - AGITATION [None]
  - CONDITION AGGRAVATED [None]
  - DRUG INTERACTION [None]
  - DRUG WITHDRAWAL SYNDROME [None]
  - FEELING ABNORMAL [None]
  - STRESS [None]
